FAERS Safety Report 4738354-9 (Version None)
Quarter: 2005Q3

REPORT INFORMATION
  Report Type: 
  Country: None (occurrence: None)
  Receive Date: 20050803
  Receipt Date: 20050728
  Transmission Date: 20060218
  Serious: Yes (Death)
  Sender: FDA-Public Use
  Company Number: USA-2005-0020888

PATIENT
  Age: 4 Year

DRUGS (1)
  1. OXYCONTIN [Suspect]
     Dosage: 80 MG

REACTIONS (1)
  - ACCIDENTAL DRUG INTAKE BY CHILD [None]
